FAERS Safety Report 16097683 (Version 1)
Quarter: 2019Q1

REPORT INFORMATION
  Report Type: Spontaneous
  Country: US (occurrence: US)
  Receive Date: 20190320
  Receipt Date: 20190320
  Transmission Date: 20190418
  Serious: No
  Sender: FDA-Public Use
  Company Number: US-ASTRAZENECA-2019SE30106

PATIENT
  Age: 3586 Week
  Sex: Female

DRUGS (1)
  1. BYDUREON BCISE [Suspect]
     Active Substance: EXENATIDE
     Route: 058

REACTIONS (4)
  - Asthenia [Unknown]
  - Hunger [Unknown]
  - Malaise [Unknown]
  - Device leakage [Unknown]

NARRATIVE: CASE EVENT DATE: 20190218
